FAERS Safety Report 6705829-2 (Version None)
Quarter: 2010Q2

REPORT INFORMATION
  Report Type: 
  Country: None (occurrence: None)
  Receive Date: 20100503
  Receipt Date: 20081118
  Transmission Date: 20101027
  Serious: Yes (Other)
  Sender: FDA-Public Use
  Company Number: US-BAYER-200831563NA

PATIENT
  Age: 17 Year
  Sex: Female

DRUGS (1)
  1. YAZ [Suspect]
     Indication: CONTRACEPTION
     Dosage: ONE TABLET PER DAY
     Route: 048
     Dates: start: 20080718

REACTIONS (2)
  - AXILLARY MASS [None]
  - LYMPHADENOPATHY [None]
